FAERS Safety Report 21732773 (Version 1)
Quarter: 2022Q4

REPORT INFORMATION
  Report Type: Report from Study
  Country: IL (occurrence: IL)
  Receive Date: 20221215
  Receipt Date: 20221215
  Transmission Date: 20230112
  Serious: Yes (Death)
  Sender: FDA-Public Use
  Company Number: IL-ABBVIE-4236631

PATIENT
  Sex: Female

DRUGS (2)
  1. CARBIDOPA\LEVODOPA [Suspect]
     Active Substance: CARBIDOPA\LEVODOPA
     Indication: Parkinson^s disease
     Dosage: MORNING DOSAGE 8.5ML, CONTINUOUS DOSAGE 4.0ML/H, ED 1.7ML, NIGHT CONTINUOUS DOSAGE (ML/H)  1.8
     Route: 050
     Dates: start: 20141029, end: 20221207
  2. CARBIDOPA\LEVODOPA [Suspect]
     Active Substance: CARBIDOPA\LEVODOPA

REACTIONS (2)
  - Death [Fatal]
  - Bedridden [Unknown]

NARRATIVE: CASE EVENT DATE: 20210101
